FAERS Safety Report 16672648 (Version 1)
Quarter: 2019Q3

REPORT INFORMATION
  Report Type: Spontaneous
  Country: US (occurrence: US)
  Receive Date: 20190620
  Receipt Date: 20190620
  Transmission Date: 20191004
  Serious: Yes (Hospitalization)
  Sender: FDA-Public Use
  Company Number: None

PATIENT
  Age: 52 Year
  Sex: Female
  Weight: 54.6 kg

DRUGS (1)
  1. CISPLATIN. [Suspect]
     Active Substance: CISPLATIN
     Dates: end: 20190610

REACTIONS (21)
  - Tachycardia [None]
  - Lethargy [None]
  - Oesophagitis [None]
  - Diverticulum intestinal [None]
  - Abdominal pain upper [None]
  - Fluid overload [None]
  - Acute respiratory failure [None]
  - Loss of consciousness [None]
  - Blood loss anaemia [None]
  - Pleural effusion [None]
  - Hypotension [None]
  - Shock haemorrhagic [None]
  - Gastric ulcer [None]
  - Wound [None]
  - Duodenal ulcer [None]
  - Cardiac failure congestive [None]
  - Upper gastrointestinal haemorrhage [None]
  - Platelet count decreased [None]
  - Pulmonary granuloma [None]
  - Unresponsive to stimuli [None]
  - Rectal haemorrhage [None]

NARRATIVE: CASE EVENT DATE: 20190613
